FAERS Safety Report 17741985 (Version 1)
Quarter: 2020Q2

REPORT INFORMATION
  Report Type: Spontaneous
  Country: NL (occurrence: NL)
  Receive Date: 20200505
  Receipt Date: 20200505
  Transmission Date: 20200714
  Serious: Yes (Hospitalization, Other)
  Sender: FDA-Public Use
  Company Number: NL-AUROBINDO-AUR-APL-2020-021737

PATIENT
  Age: 54 Year
  Sex: Female

DRUGS (2)
  1. SULFASALAZINE. [Concomitant]
     Active Substance: SULFASALAZINE
     Indication: PRODUCT USED FOR UNKNOWN INDICATION
     Dosage: 1000 MILLIGRAM, TWO TIMES A DAY (2000 MG,QD)
     Route: 048
     Dates: start: 20140107
  2. IBUPROFEN. [Suspect]
     Active Substance: IBUPROFEN
     Indication: SPONDYLITIS
     Dosage: 600 MILLIGRAM, 3 TIMES A DAY (1800 MG,QD)
     Route: 048
     Dates: start: 20140826, end: 20141013

REACTIONS (1)
  - Renal impairment [Recovered/Resolved]

NARRATIVE: CASE EVENT DATE: 20141013
